FAERS Safety Report 5706424-4 (Version None)
Quarter: 2008Q2

REPORT INFORMATION
  Report Type: 
  Country: None (occurrence: None)
  Receive Date: 20080411
  Receipt Date: 20080401
  Transmission Date: 20081010
  Serious: Yes (Hospitalization)
  Sender: FDA-Public Use
  Company Number: 2008AL001982

PATIENT
  Age: 70 Year
  Sex: Female

DRUGS (10)
  1. PHENYTOIN [Suspect]
     Indication: CONVULSION
     Dosage: 200 MG; QD; PO
     Route: 048
     Dates: start: 20060529
  2. PREDNISONE [Concomitant]
  3. FLUTICASONE [Concomitant]
  4. ASPIRIN [Concomitant]
  5. ATORVASTATIN CALCIUM [Concomitant]
  6. CARBIDOPA AND LEVODOPA [Concomitant]
  7. CALCIUM CARBONATE [Concomitant]
  8. DOCUSATE SODIUM [Concomitant]
  9. HEPARIN [Concomitant]
  10. CABERGOLINE [Concomitant]

REACTIONS (2)
  - ADRENOCORTICAL INSUFFICIENCY ACUTE [None]
  - LOSS OF CONSCIOUSNESS [None]
